FAERS Safety Report 7212970-7 (Version None)
Quarter: 2011Q1

REPORT INFORMATION
  Report Type: 
  Country: None (occurrence: None)
  Receive Date: 20110106
  Receipt Date: 20101216
  Transmission Date: 20110831
  Serious: Yes (Hospitalization, Congenital Anomaly)
  Sender: FDA-Public Use
  Company Number: A0847390A

PATIENT
  Sex: Male

DRUGS (4)
  1. PAXIL [Suspect]
  2. PRENATAL VITAMINS [Concomitant]
  3. PAXIL CR [Suspect]
     Dosage: 25MG UNKNOWN
     Dates: start: 20021111, end: 20031007
  4. ALBUTEROL [Concomitant]

REACTIONS (6)
  - CARDIAC DISORDER [None]
  - VENTRICULAR SEPTAL DEFECT [None]
  - ATRIAL SEPTAL DEFECT [None]
  - PATENT DUCTUS ARTERIOSUS [None]
  - HYPOPLASTIC LEFT HEART SYNDROME [None]
  - DRUG EXPOSURE DURING PREGNANCY [None]
